FAERS Safety Report 7284224-4 (Version None)
Quarter: 2011Q1

REPORT INFORMATION
  Report Type: 
  Country: None (occurrence: None)
  Receive Date: 20110209
  Receipt Date: 20110208
  Transmission Date: 20110831
  Serious: No
  Sender: FDA-Public Use
  Company Number: US-PFIZER INC-2011028606

PATIENT
  Sex: Female

DRUGS (3)
  1. SYNTHROID [Concomitant]
     Dosage: UNK
  2. CHANTIX [Suspect]
     Indication: SMOKING CESSATION THERAPY
     Dosage: 0.5 MG, 1X/DAY
     Route: 048
     Dates: start: 20110101
  3. LEXAPRO [Concomitant]
     Dosage: UNK

REACTIONS (4)
  - ABNORMAL DREAMS [None]
  - NAUSEA [None]
  - DRUG INEFFECTIVE [None]
  - VOMITING [None]
